FAERS Safety Report 8206615-7 (Version None)
Quarter: 2012Q1

REPORT INFORMATION
  Report Type: 
  Country: None (occurrence: None)
  Receive Date: 20120314
  Receipt Date: 20120306
  Transmission Date: 20120608
  Serious: Yes (Other)
  Sender: FDA-Public Use
  Company Number: US-BRISTOL-MYERS SQUIBB COMPANY-16435992

PATIENT
  Sex: Male
  Weight: 76 kg

DRUGS (3)
  1. AVASTIN [Suspect]
  2. ERBITUX [Suspect]
     Indication: HEPATIC NEOPLASM MALIGNANT
  3. ERBITUX [Suspect]
     Indication: COLORECTAL CANCER

REACTIONS (2)
  - COLITIS ISCHAEMIC [None]
  - SKIN DISORDER [None]
